FAERS Safety Report 6978966 (Version 2)
Quarter: 2015Q1

REPORT INFORMATION
  Report Type: Spontaneous
  Country: US (occurrence: US)
  Receive Date: 20090427
  Receipt Date: 20150324
  Transmission Date: 20150721
  Serious: Yes (Congenital Anomaly, Other)
  Sender: FDA-Public Use
  Company Number: US-ELI_LILLY_AND_COMPANY-US200904003121

PATIENT
  Age: 0 Day
  Sex: Female

DRUGS (3)
  1. PROZAC [Suspect]
     Active Substance: FLUOXETINE HYDROCHLORIDE
     Indication: POSTPARTUM DEPRESSION
     Dosage: 20 MG, QD
     Route: 064
     Dates: start: 200012
  2. XANAX [Concomitant]
     Active Substance: ALPRAZOLAM
     Dosage: 0.5 MG, PRN
     Route: 064
  3. ANTIVERT                           /00007101/ [Concomitant]
     Dosage: 25 MG, EVERY 8 HRS
     Route: 064

REACTIONS (6)
  - Neonatal respiratory distress syndrome [Not Recovered/Not Resolved]
  - Vitello-intestinal duct remnant [Not Recovered/Not Resolved]
  - Foetal exposure during pregnancy [Unknown]
  - Dextrocardia [Not Recovered/Not Resolved]
  - Pulmonary valve stenosis [Not Recovered/Not Resolved]
  - Limb malformation [Unknown]

NARRATIVE: CASE EVENT DATE: 20011120
